FAERS Safety Report 4586752-9 (Version None)
Quarter: 2005Q1

REPORT INFORMATION
  Report Type: 
  Country: None (occurrence: None)
  Receive Date: 20050217
  Receipt Date: 20050217
  Transmission Date: 20050727
  Serious: Yes (Death, Hospitalization)
  Sender: FDA-Public Use
  Company Number: None

PATIENT
  Age: 48 Year
  Sex: Male
  Weight: 74.8435 kg

DRUGS (18)
  1. LAMICTAL [Suspect]
     Indication: ADRENOCORTICAL STEROID THERAPY
     Dosage: SEE IMAGE
     Route: 048
     Dates: start: 20040115, end: 20040719
  2. LAMICTAL [Suspect]
     Indication: AFFECTIVE DISORDER
     Dosage: SEE IMAGE
     Route: 048
     Dates: start: 20040115, end: 20040719
  3. LAMICTAL [Suspect]
     Indication: BRAIN STEM SYNDROME
     Dosage: SEE IMAGE
     Route: 048
     Dates: start: 20040115, end: 20040719
  4. LAMICTAL [Suspect]
     Indication: MEMORY IMPAIRMENT
     Dosage: SEE IMAGE
     Route: 048
     Dates: start: 20040115, end: 20040719
  5. AMITRIPTYLINE HCL [Concomitant]
  6. AZATHIOPRINE [Concomitant]
  7. GEMFIBROZIL [Concomitant]
  8. LIPITOR [Concomitant]
  9. METOPROLOL TARTRATE [Concomitant]
  10. NITRO QUICK [Concomitant]
  11. SULAR [Concomitant]
  12. PREDNISONE [Concomitant]
  13. SODIUM BICARBONATE [Concomitant]
  14. ASPRIN [Concomitant]
  15. FOLIC ACID [Concomitant]
  16. INSULIN [Concomitant]
  17. SANDIMMUNE [Concomitant]
  18. ISOSORBIDA [Concomitant]

REACTIONS (5)
  - BRAIN DEATH [None]
  - CARDIO-RESPIRATORY ARREST [None]
  - GASTRIC ULCER PERFORATION [None]
  - INTESTINAL PERFORATION [None]
  - MYOCARDIAL INFARCTION [None]
